FAERS Safety Report 9067671 (Version 1)
Quarter: 2013Q1

REPORT INFORMATION
  Report Type: Spontaneous
  Country: US (occurrence: US)
  Receive Date: 20130206
  Receipt Date: 20130206
  Transmission Date: 20140127
  Serious: Yes (Other)
  Sender: FDA-Public Use
  Company Number: US-BAYER-2013-012811

PATIENT
  Sex: Female

DRUGS (1)
  1. PHILLIPS^ LIQUID GELS STOOL SOFTENER [Suspect]
     Dosage: UNK
     Route: 048
     Dates: start: 20130129

REACTIONS (2)
  - Faeces discoloured [None]
  - Expired drug administered [None]
